FAERS Safety Report 9486354 (Version 3)
Quarter: 2013Q4

REPORT INFORMATION
  Report Type: Spontaneous
  Country: US (occurrence: US)
  Receive Date: 20130829
  Receipt Date: 20131025
  Transmission Date: 20140711
  Serious: Yes (Death, Other)
  Sender: FDA-Public Use
  Company Number: US-ASTELLAS-2013US006045

PATIENT
  Age: 51 Year
  Sex: Female

DRUGS (1)
  1. PROGRAF [Suspect]
     Indication: RENAL AND PANCREAS TRANSPLANT
     Dosage: 4 MG, BID
     Route: 048
     Dates: start: 19950215

REACTIONS (3)
  - Off label use [Unknown]
  - Breast cancer [Fatal]
  - Metastases to bone [Not Recovered/Not Resolved]
